FAERS Safety Report 24103084 (Version 1)
Quarter: 2024Q3

REPORT INFORMATION
  Report Type: Spontaneous
  Country: US (occurrence: US)
  Receive Date: 20240717
  Receipt Date: 20240717
  Transmission Date: 20241017
  Serious: Yes (Hospitalization)
  Sender: ROCHE
  Company Number: US-ROCHE-10000024273

PATIENT
  Sex: Female

DRUGS (2)
  1. ERIVEDGE [Suspect]
     Active Substance: VISMODEGIB
     Indication: Basal cell carcinoma
     Route: 048
     Dates: start: 202308
  2. ERIVEDGE [Suspect]
     Active Substance: VISMODEGIB
     Indication: Metastases to bone

REACTIONS (3)
  - Atrial fibrillation [Unknown]
  - COVID-19 [Unknown]
  - Drug withdrawal syndrome [Unknown]
